FAERS Safety Report 4774610-6 (Version None)
Quarter: 2005Q3

REPORT INFORMATION
  Report Type: 
  Country: None (occurrence: None)
  Receive Date: 20050921
  Receipt Date: 20050915
  Transmission Date: 20060218
  Serious: Yes (Death)
  Sender: FDA-Public Use
  Company Number: 2005SE05242

PATIENT
  Age: 32 Year
  Sex: Male

DRUGS (4)
  1. SEROQUEL [Suspect]
     Indication: SCHIZOPHRENIA
     Route: 048
     Dates: start: 20040726
  2. LEPONEX [Interacting]
     Indication: SCHIZOPHRENIA
     Route: 048
     Dates: start: 20021101
  3. STESOLID [Concomitant]
  4. IMOVANE [Concomitant]

REACTIONS (10)
  - ARTERIOSCLEROSIS [None]
  - CARDIOMYOPATHY [None]
  - DEATH [None]
  - DRUG INTERACTION [None]
  - DRUG TOXICITY [None]
  - INTENTIONAL MISUSE [None]
  - MUSCLE SPASMS [None]
  - MUSCLE TWITCHING [None]
  - OVERDOSE [None]
  - PETIT MAL EPILEPSY [None]
